FAERS Safety Report 8465171-9 (Version None)
Quarter: 2012Q2

REPORT INFORMATION
  Report Type: 
  Country: None (occurrence: None)
  Receive Date: 20120626
  Receipt Date: 20120618
  Transmission Date: 20120825
  Serious: Yes (Hospitalization)
  Sender: FDA-Public Use
  Company Number: PHFR2012GB003555

PATIENT
  Sex: Female

DRUGS (1)
  1. CLOZARIL [Suspect]
     Indication: SCHIZOPHRENIA
     Route: 048
     Dates: start: 20030910

REACTIONS (4)
  - MENINGITIS [None]
  - NEOPLASM MALIGNANT [None]
  - MUSCULOSKELETAL STIFFNESS [None]
  - RASH GENERALISED [None]
